FAERS Safety Report 8505756-4 (Version None)
Quarter: 2012Q3

REPORT INFORMATION
  Report Type: 
  Country: None (occurrence: None)
  Receive Date: 20120712
  Receipt Date: 20120628
  Transmission Date: 20120928
  Serious: Yes (Death, Hospitalization)
  Sender: FDA-Public Use
  Company Number: US-BAYER-2012-064834

PATIENT
  Age: 30 Year
  Sex: Female
  Weight: 90 kg

DRUGS (12)
  1. CLARITIN [Concomitant]
     Dosage: UNK
     Dates: start: 20110816
  2. CIPROFLOXACIN HCL [Concomitant]
     Dosage: 500 MG, UNK
     Dates: start: 20110907
  3. PREDNISONE [Concomitant]
     Dosage: 20 MG, UNK
     Dates: start: 20110907
  4. ALBUTEROL [Concomitant]
     Dosage: UNK
     Dates: start: 20110907
  5. BEYAZ [Suspect]
  6. YAZ [Suspect]
  7. VICODIN [Concomitant]
     Dosage: UNK
     Dates: start: 20110728
  8. MULTI-VITAMIN [Concomitant]
  9. ZITHROMAX [Concomitant]
     Dosage: UNK
     Dates: start: 20110728
  10. PSEUDOEPHEDRINE HCL W/GUAIFENESIN [Concomitant]
     Dosage: UNK
     Dates: start: 20110913
  11. YASMIN [Suspect]
  12. ULTRAM [Concomitant]
     Dosage: UNK
     Dates: start: 20110728

REACTIONS (2)
  - PULMONARY EMBOLISM [None]
  - PELVIC VENOUS THROMBOSIS [None]
